FAERS Safety Report 8273393-5 (Version None)
Quarter: 2012Q2

REPORT INFORMATION
  Report Type: 
  Country: None (occurrence: None)
  Receive Date: 20120411
  Receipt Date: 20120407
  Transmission Date: 20120825
  Serious: Yes (Death, Other)
  Sender: FDA-Public Use
  Company Number: PHHY2012BR029952

PATIENT
  Sex: Female

DRUGS (1)
  1. ONBREZ [Suspect]
     Dosage: 1 DF, BID
     Dates: start: 20110501

REACTIONS (2)
  - ASTHMATIC CRISIS [None]
  - SEPTIC SHOCK [None]
